FAERS Safety Report 4498487-1 (Version None)
Quarter: 2004Q4

REPORT INFORMATION
  Report Type: 
  Country: None (occurrence: None)
  Receive Date: 20041105
  Receipt Date: 20041026
  Transmission Date: 20050328
  Serious: Yes (Hospitalization)
  Sender: FDA-Public Use
  Company Number: K200401658

PATIENT
  Age: 41 Year
  Sex: Female

DRUGS (1)
  1. NORDETTE-21 [Suspect]
     Indication: ORAL CONTRACEPTION
     Dosage: ORAL
     Route: 048

REACTIONS (4)
  - HAEMOLYTIC ANAEMIA [None]
  - PROTEINURIA [None]
  - RENAL IMPAIRMENT [None]
  - THROMBOTIC THROMBOCYTOPENIC PURPURA [None]
